FAERS Safety Report 10542766 (Version 1)
Quarter: 2014Q4

REPORT INFORMATION
  Report Type: Spontaneous
  Country: US (occurrence: None)
  Receive Date: 20141024
  Receipt Date: 20141024
  Transmission Date: 20150529
  Serious: No
  Sender: FDA-Public Use
  Company Number: None

PATIENT
  Age: 40 Year
  Sex: Male
  Weight: 71.22 kg

DRUGS (1)
  1. LEVOTHYROXINE [Suspect]
     Active Substance: LEVOTHYROXINE
     Indication: HYPOTHYROIDISM
     Dosage: 1 TAKEN BY MOUTH
     Route: 048
     Dates: start: 20140503, end: 20141023

REACTIONS (4)
  - No therapeutic response [None]
  - Somnolence [None]
  - Pollakiuria [None]
  - Fatigue [None]

NARRATIVE: CASE EVENT DATE: 20140503
